FAERS Safety Report 20809473 (Version 1)
Quarter: 2022Q2

REPORT INFORMATION
  Report Type: Spontaneous
  Country: US (occurrence: US)
  Receive Date: 20220510
  Receipt Date: 20220510
  Transmission Date: 20220721
  Serious: No
  Sender: FDA-Public Use
  Company Number: US-OYSTER POINT PHARMA, INC.-2022OYS00328

PATIENT

DRUGS (1)
  1. TYRVAYA [Suspect]
     Active Substance: VARENICLINE TARTRATE
     Dosage: 0.06 MG (1 SQUIRT IN EACH NOSTRIL)
     Route: 045

REACTIONS (12)
  - Tinnitus [Recovered/Resolved]
  - Rhinorrhoea [Recovered/Resolved]
  - Ear pruritus [Recovered/Resolved]
  - Stomatitis [Recovered/Resolved]
  - Dry throat [Not Recovered/Not Resolved]
  - Dysphonia [Not Recovered/Not Resolved]
  - Throat tightness [Not Recovered/Not Resolved]
  - Throat clearing [Recovered/Resolved]
  - Sneezing [Recovered/Resolved]
  - Throat irritation [Recovered/Resolved]
  - Nasal discomfort [Recovered/Resolved]
  - Lacrimation increased [Recovered/Resolved]
